FAERS Safety Report 12293430 (Version 2)
Quarter: 2016Q2

REPORT INFORMATION
  Report Type: Spontaneous
  Country: US (occurrence: US)
  Receive Date: 20160421
  Receipt Date: 20160517
  Transmission Date: 20160815
  Serious: No
  Sender: FDA-Public Use
  Company Number: US-BAYER-2016-072077

PATIENT
  Age: 55 Year
  Sex: Female
  Weight: 117.91 kg

DRUGS (4)
  1. ALEVE [Suspect]
     Active Substance: NAPROXEN SODIUM
     Indication: ARTHRALGIA
  2. ALEVE [Suspect]
     Active Substance: NAPROXEN SODIUM
     Indication: ARTHRALGIA
  3. ALEVE [Suspect]
     Active Substance: NAPROXEN SODIUM
     Indication: BACK PAIN
     Dosage: 2 DF, QD, WITH FOOD
     Route: 048
     Dates: start: 201603, end: 201604
  4. ALEVE [Suspect]
     Active Substance: NAPROXEN SODIUM
     Indication: BACK PAIN
     Dosage: 2 DF, PRN
     Route: 048

REACTIONS (8)
  - Vision blurred [None]
  - Drug effect incomplete [None]
  - Contusion [Not Recovered/Not Resolved]
  - Pain [None]
  - Product use issue [None]
  - Diarrhoea [Not Recovered/Not Resolved]
  - Eyelid oedema [None]
  - Gastritis [None]

NARRATIVE: CASE EVENT DATE: 201503
